FAERS Safety Report 22721100 (Version 2)
Quarter: 2023Q4

REPORT INFORMATION
  Report Type: Spontaneous
  Country: KR (occurrence: KR)
  Receive Date: 20230719
  Receipt Date: 20231006
  Transmission Date: 20240110
  Serious: No
  Sender: FDA-Public Use
  Company Number: KR-BAYER-2019-138591

PATIENT

DRUGS (1)
  1. EYLEA [Suspect]
     Active Substance: AFLIBERCEPT
     Indication: Product used for unknown indication
     Dosage: UNK, SOLUTION FOR INJECTION, 40 MG/ML
     Dates: start: 20190716

REACTIONS (6)
  - Visual impairment [Unknown]
  - Vitreous opacities [Unknown]
  - Vitreous disorder [Unknown]
  - Visual impairment [Unknown]
  - Eye infection [Unknown]
  - Eye inflammation [Unknown]
